FAERS Safety Report 25717957 (Version 1)
Quarter: 2025Q3

REPORT INFORMATION
  Report Type: Report from Study
  Country: CA (occurrence: CA)
  Receive Date: 20250822
  Receipt Date: 20250822
  Transmission Date: 20251021
  Serious: Yes (Other)
  Sender: HLS THERAPEUTICS
  Company Number: CA-HLS-202501973

PATIENT
  Sex: Female

DRUGS (2)
  1. CLOZARIL [Suspect]
     Active Substance: CLOZAPINE
     Indication: Dementia
     Route: 048
     Dates: start: 20241101
  2. CLOZAPINE [Suspect]
     Active Substance: CLOZAPINE
     Indication: Dementia
     Route: 048

REACTIONS (3)
  - Product dispensing error [Unknown]
  - Product use in unapproved indication [Unknown]
  - Dementia with Lewy bodies [Unknown]
